FAERS Safety Report 16495987 (Version 2)
Quarter: 2019Q3

REPORT INFORMATION
  Report Type: Spontaneous
  Country: US (occurrence: US)
  Receive Date: 20190628
  Receipt Date: 20190710
  Transmission Date: 20191004
  Serious: Yes (Other)
  Sender: FDA-Public Use
  Company Number: US-NOVOPROD-669387

PATIENT
  Age: 85 Year
  Sex: Male

DRUGS (2)
  1. NOVOLOG [Suspect]
     Active Substance: INSULIN ASPART
     Indication: PRODUCT USED FOR UNKNOWN INDICATION
     Dosage: 12-14 UNITS
     Route: 058
  2. NOVOLOG [Suspect]
     Active Substance: INSULIN ASPART
     Dosage: INCREASED DOSE
     Route: 058

REACTIONS (8)
  - Fall [Unknown]
  - Incorrect product administration duration [Unknown]
  - Parkinson^s disease [Unknown]
  - Malaise [Unknown]
  - Herpes zoster [Not Recovered/Not Resolved]
  - Injection site bruising [Unknown]
  - Blood glucose increased [Unknown]
  - Upper limb fracture [Unknown]

NARRATIVE: CASE EVENT DATE: 20181208
